FAERS Safety Report 24538989 (Version 2)
Quarter: 2025Q1

REPORT INFORMATION
  Report Type: Spontaneous
  Country: HU (occurrence: HU)
  Receive Date: 20241023
  Receipt Date: 20250228
  Transmission Date: 20250408
  Serious: Yes (Other)
  Sender: AMGEN
  Company Number: HU-AMGEN-HUNSP2024204439

PATIENT
  Age: 65 Year
  Sex: Female

DRUGS (1)
  1. PROLIA [Suspect]
     Active Substance: DENOSUMAB
     Indication: Product used for unknown indication
     Route: 065
     Dates: start: 201807

REACTIONS (17)
  - Cholecystitis infective [Recovered/Resolved]
  - Actinomycosis [Unknown]
  - Spinal fracture [Unknown]
  - Chronic sinusitis [Unknown]
  - Bacterial infection [Recovered/Resolved]
  - Ear disorder [Unknown]
  - Eye pain [Unknown]
  - Eye swelling [Unknown]
  - Abdominal pain [Not Recovered/Not Resolved]
  - Gastrointestinal infection [Unknown]
  - Lactose intolerance [Unknown]
  - Sinus disorder [Unknown]
  - Tooth disorder [Unknown]
  - Urinary tract infection [Recovered/Resolved]
  - Upper respiratory tract infection [Unknown]
  - Bone pain [Unknown]
  - Bone disorder [Unknown]

NARRATIVE: CASE EVENT DATE: 20190101
